FAERS Safety Report 5520338-4 (Version None)
Quarter: 2007Q4

REPORT INFORMATION
  Report Type: 
  Country: None (occurrence: None)
  Receive Date: 20071119
  Receipt Date: 20071115
  Transmission Date: 20080405
  Serious: Yes (Hospitalization)
  Sender: FDA-Public Use
  Company Number: FR-JNJFOC-20071105221

PATIENT
  Sex: Female

DRUGS (13)
  1. RISPERDAL [Suspect]
     Indication: HALLUCINATION
     Route: 048
  2. MODOPAR [Suspect]
     Indication: PARKINSON'S DISEASE
     Route: 048
  3. SEROPLEX [Suspect]
     Indication: DEPRESSION
     Route: 048
  4. DITROPAN [Suspect]
     Indication: DYSURIA
     Route: 048
  5. DISCOTRINE [Concomitant]
  6. EUPANTHOL [Concomitant]
  7. LEVOTHYROXINE SODIUM [Concomitant]
  8. PRAXINOR [Concomitant]
  9. CACIT D3 [Concomitant]
  10. STRUCTUM [Concomitant]
  11. STILNOX [Concomitant]
  12. TANAKAN [Concomitant]
  13. VASTAREL [Concomitant]

REACTIONS (3)
  - FALL [None]
  - GAIT DISTURBANCE [None]
  - HALLUCINATION [None]
